FAERS Safety Report 23101442 (Version 2)
Quarter: 2023Q4

REPORT INFORMATION
  Report Type: Report from Study
  Country: IL (occurrence: IL)
  Receive Date: 20231024
  Receipt Date: 20231101
  Transmission Date: 20240110
  Serious: Yes (Death)
  Sender: FDA-Public Use
  Company Number: IL-ABBVIE-5462143

PATIENT
  Age: 38 Year
  Sex: Female
  Weight: 68 kg

DRUGS (10)
  1. SKYRIZI [Suspect]
     Active Substance: RISANKIZUMAB-RZAA
     Indication: Psoriasis
     Dosage: 1 INJECTION, LAST ADMIN DATE-2023
     Route: 058
     Dates: start: 20230203
  2. SKYRIZI [Suspect]
     Active Substance: RISANKIZUMAB-RZAA
     Dosage: 2 INJECTIONS, LAST ADMIN DATE-2022
     Route: 058
     Dates: start: 20220316
  3. SKYRIZI [Suspect]
     Active Substance: RISANKIZUMAB-RZAA
     Dosage: 2 INJECTIONS, LAST ADMIN DATE-2022
     Route: 058
     Dates: start: 20220421
  4. SKYRIZI [Suspect]
     Active Substance: RISANKIZUMAB-RZAA
     Dosage: 2 INJECTIONS, LAST ADMIN DATE-2022
     Route: 058
     Dates: start: 20220929
  5. SKYRIZI [Suspect]
     Active Substance: RISANKIZUMAB-RZAA
     Dosage: 2 INJECTIONS, LAST ADMIN DATE-2022
     Route: 058
     Dates: start: 20220617
  6. SKYRIZI [Suspect]
     Active Substance: RISANKIZUMAB-RZAA
     Dosage: 1 INJECTION
     Route: 058
     Dates: start: 20230614, end: 20231017
  7. SKYRIZI [Suspect]
     Active Substance: RISANKIZUMAB-RZAA
     Dosage: 2 INJECTIONS
     Route: 058
     Dates: start: 20221221
  8. PFIZER-BIONTECH COVID-19 VACCINE [Concomitant]
     Active Substance: TOZINAMERAN
     Indication: COVID-19 immunisation
     Route: 030
     Dates: start: 20210917, end: 20210917
  9. PFIZER-BIONTECH COVID-19 VACCINE [Concomitant]
     Active Substance: TOZINAMERAN
     Indication: COVID-19 immunisation
     Route: 030
     Dates: start: 20210214, end: 20210214
  10. PFIZER-BIONTECH COVID-19 VACCINE [Concomitant]
     Active Substance: TOZINAMERAN
     Indication: COVID-19 immunisation
     Route: 030
     Dates: start: 20210308, end: 20210308

REACTIONS (1)
  - Death [Fatal]

NARRATIVE: CASE EVENT DATE: 20231017
